FAERS Safety Report 17167370 (Version 1)
Quarter: 2019Q4

REPORT INFORMATION
  Report Type: Spontaneous
  Country: US (occurrence: US)
  Receive Date: 20191217
  Receipt Date: 20191217
  Transmission Date: 20200122
  Serious: No
  Sender: FDA-Public Use
  Company Number: US-ELI_LILLY_AND_COMPANY-US201911010734

PATIENT
  Age: 68 Year
  Sex: Male

DRUGS (3)
  1. BASAGLAR [Suspect]
     Active Substance: INSULIN GLARGINE
     Dosage: 13 U, DAILY
     Route: 058
  2. BASAGLAR [Suspect]
     Active Substance: INSULIN GLARGINE
     Indication: TYPE 2 DIABETES MELLITUS
     Dosage: 10 U, DAILY
     Route: 058
     Dates: start: 201910
  3. BASAGLAR [Suspect]
     Active Substance: INSULIN GLARGINE
     Dosage: 13 U, DAILY
     Route: 058
     Dates: start: 201910

REACTIONS (1)
  - Accidental underdose [Unknown]
